FAERS Safety Report 14292354 (Version 1)
Quarter: 2017Q4

REPORT INFORMATION
  Report Type: Spontaneous
  Country: CA (occurrence: CA)
  Receive Date: 20171215
  Receipt Date: 20171215
  Transmission Date: 20180321
  Serious: Yes (Other)
  Sender: FDA-Public Use
  Company Number: CA-CELLTRION INC.-2017CA017168

PATIENT

DRUGS (4)
  1. SOLU-MEDROL [Suspect]
     Active Substance: METHYLPREDNISOLONE SODIUM SUCCINATE
     Indication: PRODUCT USED FOR UNKNOWN INDICATION
     Dosage: 100 MG, PRE INFUSION OF INFLECTRA
     Route: 042
     Dates: start: 20170509, end: 20171206
  2. INFLECTRA [Suspect]
     Active Substance: INFLIXIMAB-DYYB
     Indication: COLITIS ULCERATIVE
     Dosage: 350 MG, CYCLIC (EVERY 0, 2,6 WEEKS, THEN EVERY 8 WEEKS)
     Route: 042
     Dates: start: 20170509
  3. INFLECTRA [Suspect]
     Active Substance: INFLIXIMAB-DYYB
     Dosage: 350 MG, CYCLIC (EVERY 0, 2,6 WEEKS, THEN EVERY 8 WEEKS)
     Route: 042
     Dates: start: 20171011, end: 20171011
  4. PREDNISONE. [Concomitant]
     Active Substance: PREDNISONE
     Dosage: 40 MG, DAILY
     Route: 065

REACTIONS (2)
  - Shock [Recovering/Resolving]
  - Vein collapse [Unknown]

NARRATIVE: CASE EVENT DATE: 20171206
